FAERS Safety Report 8756094 (Version 1)
Quarter: 2012Q4

REPORT INFORMATION
  Report Type: 
  Country: US (occurrence: US)
  Receive Date: 20120828
  Receipt Date: 20120828
  Transmission Date: 20130627
  Serious: Yes (Other)
  Sender: FDA-Public Use
  Company Number: US-PFIZER INC-2012206605

PATIENT
  Age: 52 Year
  Sex: Female
  Weight: 52.15 kg

DRUGS (4)
  1. GABAPENTIN [Suspect]
     Indication: FIBROMYALGIA
     Dosage: 300 mg, 4x/day
     Dates: start: 201111, end: 2011
  2. GABAPENTIN [Suspect]
     Dosage: 300 mg, 2x/day
     Dates: start: 2011, end: 201208
  3. MORPHINE SULFATE [Suspect]
     Indication: ABDOMINAL PAIN
     Dosage: UNK
     Dates: start: 2012, end: 2012
  4. TEMAZEPAM [Concomitant]
     Indication: SLEEP DISORDER
     Dosage: 30mg or 60mg, as needed

REACTIONS (5)
  - Abdominal pain [Recovering/Resolving]
  - Gastric disorder [Recovering/Resolving]
  - Eating disorder [Unknown]
  - Polydipsia [Unknown]
  - Malaise [Unknown]
